FAERS Safety Report 5151468-7 (Version None)
Quarter: 2006Q4

REPORT INFORMATION
  Report Type: 
  Country: None (occurrence: None)
  Receive Date: 20061115
  Receipt Date: 20061113
  Transmission Date: 20070319
  Serious: Yes (Death, Hospitalization, Other)
  Sender: FDA-Public Use
  Company Number: US-SANOFI-SYNTHELABO-F01200602308

PATIENT
  Sex: Male

DRUGS (4)
  1. BEVACIZUMAB [Suspect]
     Route: 042
     Dates: start: 20060927, end: 20060927
  2. LEUCOVORIN CALCIUM [Suspect]
     Route: 042
     Dates: start: 20060927, end: 20060927
  3. FLUOROURACIL [Suspect]
     Dosage: 400 MG/M2 IV BOLUS ON DAY 1 AND 2400 MG/M2 IV CONTINUOUS INFUSION FOR 46 HOURS ON DAYS 1 AND 2, Q2W
     Route: 042
     Dates: start: 20060927, end: 20060928
  4. ELOXATIN [Suspect]
     Indication: COLON CANCER
     Route: 042
     Dates: start: 20060927, end: 20060927

REACTIONS (11)
  - ANOREXIA [None]
  - BLOOD POTASSIUM DECREASED [None]
  - DEHYDRATION [None]
  - DIARRHOEA [None]
  - FATIGUE [None]
  - HYPERTENSION [None]
  - LOSS OF CONSCIOUSNESS [None]
  - NAUSEA [None]
  - NEUTROPHIL COUNT DECREASED [None]
  - SUDDEN DEATH [None]
  - VOMITING [None]
